FAERS Safety Report 15891505 (Version 2)
Quarter: 2019Q2

REPORT INFORMATION
  Report Type: Spontaneous
  Country: US (occurrence: US)
  Receive Date: 20190130
  Receipt Date: 20190402
  Transmission Date: 20190711
  Serious: No
  Sender: FDA-Public Use
  Company Number: US-SA-2019SA021345

PATIENT
  Age: 65 Year
  Sex: Female

DRUGS (24)
  1. HYDROCODONE/ACETAMINOPHEN [Concomitant]
     Active Substance: ACETAMINOPHEN\HYDROCODONE
  2. PREDNISOLONE ACETATE. [Concomitant]
     Active Substance: PREDNISOLONE ACETATE
  3. ACETAZOLAMIDE [ACETAZOLAMIDE SODIUM] [Concomitant]
  4. BACLOFEN. [Concomitant]
     Active Substance: BACLOFEN
  5. BENZONATATE. [Concomitant]
     Active Substance: BENZONATATE
  6. COMBIGAN [Concomitant]
     Active Substance: BRIMONIDINE TARTRATE\TIMOLOL MALEATE
  7. FLUCONAZOLE AGUETTANT [Concomitant]
     Active Substance: FLUCONAZOLE
  8. RESTASIS [Concomitant]
     Active Substance: CYCLOSPORINE
  9. LORAZEPAM. [Concomitant]
     Active Substance: LORAZEPAM
  10. ACYCLOVIR [ACICLOVIR] [Concomitant]
     Active Substance: ACYCLOVIR
  11. ATROPINE SULFATE. [Concomitant]
     Active Substance: ATROPINE SULFATE
  12. GABAPENTIN 1 A PHARMA [Concomitant]
     Active Substance: GABAPENTIN
  13. LOVASTATIN. [Concomitant]
     Active Substance: LOVASTATIN
  14. AUBAGIO [Suspect]
     Active Substance: TERIFLUNOMIDE
     Dosage: 1 DF, QD
     Route: 048
     Dates: start: 20190111, end: 20190305
  15. VIGAMOX [Concomitant]
     Active Substance: MOXIFLOXACIN HYDROCHLORIDE
  16. NITROFURANTOIN MONOHYDRATE [Concomitant]
     Active Substance: NITROFURANTOIN MONOHYDRATE
  17. LEVOFLOXACIN. [Concomitant]
     Active Substance: LEVOFLOXACIN
  18. CYCLOGYL [Concomitant]
     Active Substance: CYCLOPENTOLATE HYDROCHLORIDE
  19. OMEPRAZOLE. [Concomitant]
     Active Substance: OMEPRAZOLE
  20. CLONAZEPAM. [Concomitant]
     Active Substance: CLONAZEPAM
  21. POLYMYXIN B SULFATE;TRIMETHOPRIM [Concomitant]
  22. ESTROPIPATE. [Concomitant]
     Active Substance: ESTROPIPATE
  23. CHANTIX [Concomitant]
     Active Substance: VARENICLINE TARTRATE
  24. TIMOLOL. [Concomitant]
     Active Substance: TIMOLOL

REACTIONS (8)
  - Pollakiuria [Not Recovered/Not Resolved]
  - Abdominal discomfort [Not Recovered/Not Resolved]
  - Diarrhoea [Unknown]
  - Memory impairment [Not Recovered/Not Resolved]
  - Obstructive airways disorder [Not Recovered/Not Resolved]
  - Urinary tract infection [Not Recovered/Not Resolved]
  - Pain [Not Recovered/Not Resolved]
  - Balance disorder [Not Recovered/Not Resolved]
